FAERS Safety Report 25058599 (Version 2)
Quarter: 2025Q1

REPORT INFORMATION
  Report Type: Spontaneous
  Country: US (occurrence: US)
  Receive Date: 20250310
  Receipt Date: 20250327
  Transmission Date: 20250409
  Serious: Yes (Other)
  Sender: ALEXION PHARMACEUTICALS
  Company Number: US-ASTRAZENECA-202503USA002349US

PATIENT
  Age: 57 Year

DRUGS (1)
  1. TAGRISSO [Suspect]
     Active Substance: OSIMERTINIB
     Route: 065

REACTIONS (2)
  - Malignant neoplasm progression [Unknown]
  - BRAF V600E mutation positive [Unknown]
